FAERS Safety Report 5817622-3 (Version None)
Quarter: 2008Q3

REPORT INFORMATION
  Report Type: 
  Country: None (occurrence: None)
  Receive Date: 20080722
  Receipt Date: 20070331
  Transmission Date: 20090109
  Serious: Yes (Hospitalization)
  Sender: FDA-Public Use
  Company Number: IT-ROCHE-570956

PATIENT
  Age: 49 Year
  Sex: Male

DRUGS (2)
  1. PEGASYS [Suspect]
     Route: 065
  2. REBETOL [Suspect]
     Route: 065

REACTIONS (3)
  - ACUTE PULMONARY OEDEMA [None]
  - CARDIOMYOPATHY ALCOHOLIC [None]
  - SUPRAVENTRICULAR TACHYCARDIA [None]
